FAERS Safety Report 8510848 (Version 2)
Quarter: 2012Q4

REPORT INFORMATION
  Report Type: 
  Country: FR (occurrence: FR)
  Receive Date: 20120413
  Receipt Date: 20121016
  Transmission Date: 20130627
  Serious: Yes (Life-Threatening, Hospitalization, Other)
  Sender: FDA-Public Use
  Company Number: FR-TEVA-332255ISR

PATIENT
  Age: 56 None
  Sex: Male

DRUGS (4)
  1. COPAXONE [Suspect]
     Indication: MULTIPLE SCLEROSIS
     Dosage: 20 Milligram Daily;
     Route: 058
     Dates: start: 200505, end: 201209
  2. LYRICA [Concomitant]
     Indication: MULTIPLE SCLEROSIS
     Dosage: 900 Milligram Daily;
     Route: 048
  3. RIVOTRIL [Concomitant]
     Indication: MULTIPLE SCLEROSIS
     Dosage: 10 Dosage forms Daily;
     Route: 048
  4. ZOPICLONE [Concomitant]
     Indication: INSOMNIA
     Dosage: 1 Dosage forms Daily;
     Route: 048

REACTIONS (7)
  - Oesophageal carcinoma [Not Recovered/Not Resolved]
  - Meningitis [Recovered/Resolved with Sequelae]
  - Coma [Recovered/Resolved with Sequelae]
  - Ear infection [Recovered/Resolved with Sequelae]
  - Back pain [Unknown]
  - Fall [Unknown]
  - Memory impairment [Unknown]
